FAERS Safety Report 4796534-0 (Version None)
Quarter: 2005Q4

REPORT INFORMATION
  Report Type: 
  Country: None (occurrence: None)
  Receive Date: 20051011
  Receipt Date: 20040816
  Transmission Date: 20060501
  Serious: Yes (Other)
  Sender: FDA-Public Use
  Company Number: 2004-BP-05746BP

PATIENT
  Sex: Female

DRUGS (2)
  1. CATAPRES [Suspect]
     Indication: HYPERTENSION
     Dosage: TO
     Route: 061
  2. ACE INHIBITOR [Concomitant]

REACTIONS (2)
  - CEREBROVASCULAR ACCIDENT [None]
  - REBOUND HYPERTENSION [None]
